FAERS Safety Report 13390249 (Version 1)
Quarter: 2017Q1

REPORT INFORMATION
  Report Type: Report from Study
  Country: BR (occurrence: BR)
  Receive Date: 20170331
  Receipt Date: 20170331
  Transmission Date: 20170429
  Serious: Yes (Other)
  Sender: FDA-Public Use
  Company Number: PHHY2017BR004848

PATIENT
  Age: 47 Year
  Sex: Female
  Weight: 59.5 kg

DRUGS (2)
  1. COSENTYX [Suspect]
     Active Substance: SECUKINUMAB
     Dosage: 300 MG, QW
     Route: 058
     Dates: end: 20170111
  2. COSENTYX [Suspect]
     Active Substance: SECUKINUMAB
     Indication: PSORIATIC ARTHROPATHY
     Dosage: 300 MG, QW
     Route: 058
     Dates: start: 20170104

REACTIONS (16)
  - Anal haemorrhage [Recovering/Resolving]
  - Constipation [Recovering/Resolving]
  - H1N1 influenza [Recovering/Resolving]
  - Mucosal inflammation [Recovering/Resolving]
  - Hypersensitivity [Recovering/Resolving]
  - Toothache [Recovering/Resolving]
  - Tooth loss [Recovering/Resolving]
  - Cough [Recovering/Resolving]
  - Pain [Recovering/Resolving]
  - Pruritus generalised [Recovering/Resolving]
  - Rectal haemorrhage [Recovering/Resolving]
  - Skin fissures [Recovering/Resolving]
  - Trigeminal nerve disorder [Recovering/Resolving]
  - Stomatitis [Recovering/Resolving]
  - Gastrointestinal inflammation [Recovering/Resolving]
  - Epistaxis [Recovering/Resolving]

NARRATIVE: CASE EVENT DATE: 20170104
